FAERS Safety Report 8812219 (Version 1)
Quarter: 2012Q4

REPORT INFORMATION
  Report Type: 
  Country: US (occurrence: US)
  Receive Date: 20120927
  Receipt Date: 20120927
  Transmission Date: 20130627
  Serious: No
  Sender: FDA-Public Use
  Company Number: US-PFIZER INC-2012235045

PATIENT
  Age: 79 Year
  Sex: Female
  Weight: 55.33 kg

DRUGS (4)
  1. XALATAN [Suspect]
     Indication: GLAUCOMA
     Dosage: unknown dose one drop in each eye, 1x/day
  2. BRIMONIDINE [Concomitant]
     Indication: GLAUCOMA
     Dosage: UNK
  3. DORZOLAMIDE [Concomitant]
     Indication: GLAUCOMA
     Dosage: UNK
  4. TIMOLOL [Concomitant]
     Indication: GLAUCOMA
     Dosage: UNK

REACTIONS (3)
  - Growth of eyelashes [Not Recovered/Not Resolved]
  - Hair growth abnormal [Not Recovered/Not Resolved]
  - Hypertrichosis [Not Recovered/Not Resolved]
